FAERS Safety Report 6807571-6 (Version None)
Quarter: 2010Q2

REPORT INFORMATION
  Report Type: 
  Country: None (occurrence: None)
  Receive Date: 20100629
  Receipt Date: 20081223
  Transmission Date: 20101027
  Serious: No
  Sender: FDA-Public Use
  Company Number: US-PFIZER INC-2008099956

PATIENT
  Sex: Male
  Weight: 54.43 kg

DRUGS (3)
  1. ZYVOX [Suspect]
     Indication: INFECTION
     Dosage: 600 MG, 2X/DAY
     Route: 048
     Dates: start: 20081116
  2. PAXIL [Suspect]
     Dosage: UNK
  3. HMG COA REDUCTASE INHIBITORS [Concomitant]

REACTIONS (3)
  - DEPRESSION [None]
  - DRUG INEFFECTIVE [None]
  - WITHDRAWAL SYNDROME [None]
